FAERS Safety Report 6599468-4 (Version None)
Quarter: 2010Q1

REPORT INFORMATION
  Report Type: 
  Country: None (occurrence: None)
  Receive Date: 20100224
  Receipt Date: 20100217
  Transmission Date: 20100710
  Serious: Yes (Other)
  Sender: FDA-Public Use
  Company Number: US-SANOFI-AVENTIS-2009SA011461

PATIENT
  Age: 73 Year
  Sex: Female
  Weight: 52.2 kg

DRUGS (8)
  1. MULTAQ [Suspect]
     Indication: ATRIAL FIBRILLATION
     Route: 048
     Dates: start: 20090912, end: 20091216
  2. CRESTOR [Concomitant]
  3. FOLIC ACID [Concomitant]
  4. ASPIRIN [Concomitant]
  5. DILTIAZEM HCL [Concomitant]
  6. CARVEDILOL [Concomitant]
  7. ISOSORBIDE [Concomitant]
  8. ALL OTHER THERAPEUTIC PRODUCTS [Concomitant]

REACTIONS (1)
  - VENTRICULAR TACHYCARDIA [None]
